FAERS Safety Report 13275483 (Version 1)
Quarter: 2017Q1

REPORT INFORMATION
  Report Type: Spontaneous
  Country: JP (occurrence: JP)
  Receive Date: 20170228
  Receipt Date: 20170228
  Transmission Date: 20170428
  Serious: Yes (Life-Threatening, Other)
  Sender: FDA-Public Use
  Company Number: JP-009507513-1702JPN010478

PATIENT
  Age: 52 Year
  Sex: Female

DRUGS (8)
  1. DEXAMETHASONE. [Suspect]
     Active Substance: DEXAMETHASONE
     Indication: DIFFUSE LARGE B-CELL LYMPHOMA STAGE I
     Dosage: HIGH-DOSE CHEMOTHERAPY COMBINATION-R-LEED, CYCLICAL
     Route: 048
  2. CYCLOPHOSPHAMIDE. [Suspect]
     Active Substance: CYCLOPHOSPHAMIDE
     Indication: DIFFUSE LARGE B-CELL LYMPHOMA STAGE I
     Dosage: HIGH DOSE, 3 CYCLICAL, R-CHAS
  3. ETOPOSIDE. [Suspect]
     Active Substance: ETOPOSIDE
     Indication: DIFFUSE LARGE B-CELL LYMPHOMA STAGE I
     Dosage: HIGH-DOSE CHEMOTHERAPY COMBINATION-R-LEED; CYCLICAL
  4. ETOPOSIDE. [Suspect]
     Active Substance: ETOPOSIDE
     Dosage: 3 CYCLICAL; R-CHASE, CYCLICAL
  5. CYCLOPHOSPHAMIDE. [Suspect]
     Active Substance: CYCLOPHOSPHAMIDE
     Dosage: HIGH DOSE, CHEMOTHERAPY COMBINATION-R-LEED; CYCLICAL
  6. RITUXIMAB [Suspect]
     Active Substance: RITUXIMAB
     Indication: DIFFUSE LARGE B-CELL LYMPHOMA STAGE I
     Dosage: HIGH-DOSE CHEMOTHERAPY COMBINATION-R-LEED; CYCLICAL
  7. CYTARABINE. [Suspect]
     Active Substance: CYTARABINE
     Indication: DIFFUSE LARGE B-CELL LYMPHOMA STAGE I
     Dosage: HIGH DOSE, 3 CYCLICAL, R-CHAS
  8. MELPHALAN [Suspect]
     Active Substance: MELPHALAN
     Indication: DIFFUSE LARGE B-CELL LYMPHOMA STAGE I
     Dosage: HIGH DOSE, CHEMOTHERAPY COMBINATION-R-LEED, CYCLICAL

REACTIONS (2)
  - Mucocutaneous ulceration [Recovered/Resolved]
  - Post transplant lymphoproliferative disorder [Not Recovered/Not Resolved]
